FAERS Safety Report 11820168 (Version 1)
Quarter: 2015Q4

REPORT INFORMATION
  Report Type: Spontaneous
  Country: US (occurrence: US)
  Receive Date: 20151210
  Receipt Date: 20151210
  Transmission Date: 20160305
  Serious: No
  Sender: FDA-Public Use
  Company Number: US-TEVA-605221USA

PATIENT
  Age: 88 Year
  Sex: Female
  Weight: 42.68 kg

DRUGS (1)
  1. RISEDRONATE SODIUM DELAYED-RELEASE [Suspect]
     Active Substance: RISEDRONATE SODIUM
     Indication: OSTEOPOROSIS
     Dates: start: 201508

REACTIONS (3)
  - Nausea [Unknown]
  - Drug administration error [Unknown]
  - Fall [Unknown]

NARRATIVE: CASE EVENT DATE: 20151015
